FAERS Safety Report 25366211 (Version 1)
Quarter: 2025Q2

REPORT INFORMATION
  Report Type: Report from Study
  Country: CA (occurrence: CA)
  Receive Date: 20250528
  Receipt Date: 20250528
  Transmission Date: 20250717
  Serious: Yes (Other)
  Sender: CELLTRION
  Company Number: CA-CELLTRION INC.-2023CA017787

PATIENT

DRUGS (7)
  1. RITUXIMAB [Suspect]
     Active Substance: RITUXIMAB
     Indication: Rheumatoid arthritis
     Route: 042
  2. RITUXIMAB [Suspect]
     Active Substance: RITUXIMAB
     Route: 042
  3. CALCIUM [Concomitant]
     Active Substance: CALCIUM
     Indication: Product used for unknown indication
     Route: 065
  4. PROLIA [Concomitant]
     Active Substance: DENOSUMAB
     Indication: Product used for unknown indication
     Route: 065
  5. PROLIA [Concomitant]
     Active Substance: DENOSUMAB
     Indication: Product used for unknown indication
     Route: 065
  6. ROMOSOZUMAB [Concomitant]
     Active Substance: ROMOSOZUMAB
     Indication: Product used for unknown indication
     Route: 065
  7. ROMOSOZUMAB [Concomitant]
     Active Substance: ROMOSOZUMAB
     Route: 065

REACTIONS (5)
  - Osteoporosis [Unknown]
  - Hip fracture [Unknown]
  - Pneumonia bacterial [Unknown]
  - Pathogen resistance [Unknown]
  - Product dose omission issue [Unknown]
